FAERS Safety Report 16935243 (Version 2)
Quarter: 2019Q4

REPORT INFORMATION
  Report Type: Spontaneous
  Country: JP (occurrence: JP)
  Receive Date: 20191018
  Receipt Date: 20191107
  Transmission Date: 20200122
  Serious: Yes (Other)
  Sender: FDA-Public Use
  Company Number: JP-ABBVIE-19P-087-2969330-00

PATIENT
  Age: 78 Year
  Sex: Male

DRUGS (2)
  1. LEUPLIN [Suspect]
     Active Substance: LEUPROLIDE ACETATE
     Indication: PROSTATE CANCER
     Dosage: 3.75 MILLIGRAM, Q4WEEKS
     Route: 058
     Dates: start: 20170208
  2. CASODEX [Concomitant]
     Active Substance: BICALUTAMIDE
     Indication: PRODUCT USED FOR UNKNOWN INDICATION
     Dosage: UNK
     Route: 065

REACTIONS (3)
  - Metastases to bone [Unknown]
  - Osteoporosis [Unknown]
  - Tartrate-resistant acid phosphatase increased [Unknown]

NARRATIVE: CASE EVENT DATE: 20191009
